FAERS Safety Report 18486303 (Version 1)
Quarter: 2020Q4

REPORT INFORMATION
  Report Type: Spontaneous
  Country: CN (occurrence: CN)
  Receive Date: 20201110
  Receipt Date: 20201110
  Transmission Date: 20210114
  Serious: Yes (Disabling)
  Sender: FDA-Public Use
  Company Number: CN-FERRINGPH-2020FE07681

PATIENT
  Age: 70 Year
  Sex: Male
  Weight: 62 kg

DRUGS (3)
  1. CARBAMAZEPINE A [Suspect]
     Active Substance: CARBAMAZEPINE
     Indication: SYMPTOMATIC TREATMENT
     Dosage: 0.2 G, 2 TIMES DAILY
     Route: 045
     Dates: start: 20200927, end: 20201011
  2. OMEPRAZOLE [OMEPRAZOLE SODIUM] [Concomitant]
     Active Substance: OMEPRAZOLE SODIUM
     Indication: ADJUVANT THERAPY
     Dosage: 40 MG, DAILY
     Route: 042
     Dates: start: 20200930, end: 20201007
  3. MINIRIN [Suspect]
     Active Substance: DESMOPRESSIN ACETATE
     Indication: SYMPTOMATIC TREATMENT
     Dosage: 0.1 MG, DAILY
     Route: 048
     Dates: start: 20200923, end: 20201023

REACTIONS (2)
  - Product use in unapproved indication [Recovered/Resolved]
  - Thrombocytopenia [Recovering/Resolving]

NARRATIVE: CASE EVENT DATE: 20200923
